FAERS Safety Report 8616177-8 (Version None)
Quarter: 2012Q3

REPORT INFORMATION
  Report Type: 
  Country: None (occurrence: None)
  Receive Date: 20120823
  Receipt Date: 20120815
  Transmission Date: 20120928
  Serious: Yes (Hospitalization, Disabling, Other)
  Sender: FDA-Public Use
  Company Number: US-009507513-2010SP026653

PATIENT

DRUGS (3)
  1. DARVOCET-N 50 [Concomitant]
  2. HORMONAL CONTRACEPTIVES (UNSPECIFIED) [Suspect]
     Indication: CONTRACEPTION
  3. NUVARING [Suspect]
     Indication: CONTRACEPTION
     Dates: start: 20020201, end: 20070313

REACTIONS (20)
  - ANAEMIA [None]
  - DRUG HYPERSENSITIVITY [None]
  - PULMONARY EMBOLISM [None]
  - MUSCLE SPASMS [None]
  - RASH [None]
  - HERPES SIMPLEX [None]
  - CERVICAL DYSPLASIA [None]
  - PNEUMONIA [None]
  - BRONCHITIS [None]
  - URINARY TRACT INFECTION [None]
  - HAEMORRHOIDS [None]
  - ANXIETY [None]
  - PHARYNGITIS [None]
  - VULVAL DISORDER [None]
  - PAPILLOMA VIRAL INFECTION [None]
  - CELLULITIS [None]
  - HYPONATRAEMIA [None]
  - DEPRESSED MOOD [None]
  - ADJUSTMENT DISORDER [None]
  - UTERINE STENOSIS [None]
